FAERS Safety Report 20834416 (Version 1)
Quarter: 2022Q2

REPORT INFORMATION
  Report Type: Spontaneous
  Country: US (occurrence: None)
  Receive Date: 20220513
  Receipt Date: 20220513
  Transmission Date: 20220721
  Serious: Yes (Death)
  Sender: FDA-Public Use
  Company Number: None

PATIENT
  Age: 66 Year
  Sex: Female

DRUGS (10)
  1. TADALAFIL [Suspect]
     Active Substance: TADALAFIL
     Indication: Pulmonary hypertension
     Dosage: FREQUENCY : DAILY;?
     Route: 049
     Dates: start: 20220223, end: 20220424
  2. AMBRISENTAN [Suspect]
     Active Substance: AMBRISENTAN
  3. PREDNISONE [Concomitant]
     Active Substance: PREDNISONE
  4. ALPRAZOLAM [Concomitant]
     Active Substance: ALPRAZOLAM
  5. ACETAMINOPHEN [Concomitant]
     Active Substance: ACETAMINOPHEN
  6. FUROSEMIDE [Concomitant]
     Active Substance: FUROSEMIDE
  7. WIXELA INHUB [Concomitant]
     Active Substance: FLUTICASONE PROPIONATE\SALMETEROL XINAFOATE
  8. ALBUTEROL [Concomitant]
     Active Substance: ALBUTEROL
  9. MYCOPHENOLIC ACID [Concomitant]
     Active Substance: MYCOPHENOLIC ACID
  10. ALBUTEROL SULFATE [Concomitant]
     Active Substance: ALBUTEROL SULFATE

REACTIONS (3)
  - Acute respiratory failure [None]
  - Cardiac failure congestive [None]
  - Hypokalaemia [None]

NARRATIVE: CASE EVENT DATE: 20220422
